FAERS Safety Report 21055079 (Version 1)
Quarter: 2022Q3

REPORT INFORMATION
  Report Type: Spontaneous
  Country: US (occurrence: US)
  Receive Date: 20220707
  Receipt Date: 20220707
  Transmission Date: 20221027
  Serious: No
  Sender: FDA-Public Use
  Company Number: US-GRUNENTHAL-2021-271481

PATIENT
  Age: 78 Year
  Sex: Male

DRUGS (1)
  1. QUTENZA [Suspect]
     Active Substance: CAPSAICIN
     Indication: Polyneuropathy idiopathic progressive
     Dosage: UNK
     Route: 061
     Dates: start: 20211102, end: 20211102

REACTIONS (4)
  - Pain [Unknown]
  - Pain [Unknown]
  - Erythema [Unknown]
  - Burning sensation [Unknown]

NARRATIVE: CASE EVENT DATE: 20211101
